FAERS Safety Report 25080251 (Version 2)
Quarter: 2025Q2

REPORT INFORMATION
  Report Type: Report from Study
  Country: US (occurrence: US)
  Receive Date: 20250314
  Receipt Date: 20250403
  Transmission Date: 20250717
  Serious: Yes (Hospitalization, Other)
  Sender: ABBVIE
  Company Number: US-ABBVIE-6169839

PATIENT
  Age: 63 Year
  Sex: Male

DRUGS (1)
  1. HUMIRA [Suspect]
     Active Substance: ADALIMUMAB
     Indication: Product used for unknown indication
     Route: 058
     Dates: start: 20220621, end: 202409

REACTIONS (4)
  - Cardiomegaly [Unknown]
  - Atrial fibrillation [Unknown]
  - Systemic lupus erythematosus [Unknown]
  - Joint swelling [Unknown]
